FAERS Safety Report 18054273 (Version 1)
Quarter: 2020Q3

REPORT INFORMATION
  Report Type: Spontaneous
  Country: US (occurrence: US)
  Receive Date: 20200722
  Receipt Date: 20200722
  Transmission Date: 20201103
  Serious: Yes (Disabling)
  Sender: FDA-Public Use
  Company Number: None

PATIENT
  Age: 68 Year
  Sex: Female
  Weight: 65.25 kg

DRUGS (12)
  1. PROBIOTIC [Concomitant]
     Active Substance: PROBIOTICS NOS
  2. CLONIDINE 0.375MG [Concomitant]
  3. GENERIC LIPITOR 20MG [Concomitant]
  4. LISINOPRIL. [Concomitant]
     Active Substance: LISINOPRIL
  5. NITROFURANTOIN 100MG [Concomitant]
     Active Substance: NITROFURANTOIN
  6. CIPROFLOXACIN. [Suspect]
     Active Substance: CIPROFLOXACIN
     Indication: URINARY TRACT INFECTION
     Dosage: ?          QUANTITY:1 CAPSULE(S);?
     Route: 048
     Dates: start: 20200302, end: 20200313
  7. HYDROCHOLOTHIAZIDE 25MG [Concomitant]
  8. GENERIC NORVASC 5MG [Concomitant]
  9. ELLURA 36MG [Concomitant]
  10. TOLTERODINE TART ER 2MG [Concomitant]
  11. ESTRADIOL VAGINAL CREAM [Concomitant]
     Active Substance: ESTRADIOL
  12. VITAMIN C [Concomitant]
     Active Substance: ASCORBIC ACID

REACTIONS (1)
  - Neuropathy peripheral [None]

NARRATIVE: CASE EVENT DATE: 20200323
